FAERS Safety Report 9133425 (Version 1)
Quarter: 2013Q1

REPORT INFORMATION
  Report Type: Report from Study
  Country: FR (occurrence: FR)
  Receive Date: 20130301
  Receipt Date: 20130301
  Transmission Date: 20140127
  Serious: Yes (Other)
  Sender: FDA-Public Use
  Company Number: FR-PFIZER INC-2012246889

PATIENT
  Age: 70 Year
  Sex: Male

DRUGS (8)
  1. BLINDED NO SUBJECT DRUG [Suspect]
     Indication: HEPATOCELLULAR CARCINOMA
     Dosage: CYCLIC
  2. BLINDED PLACEBO [Suspect]
     Indication: HEPATOCELLULAR CARCINOMA
     Dosage: CYCLIC
  3. SUNITINIB MALATE [Suspect]
     Indication: HEPATOCELLULAR CARCINOMA
     Dosage: CYCLIC
  4. BLINDED NO SUBJECT DRUG [Suspect]
     Dosage: 37.5 MG, CYCLIC
     Dates: start: 20120910, end: 20120927
  5. BLINDED PLACEBO [Suspect]
     Dosage: 37.5 MG, CYCLIC
     Dates: start: 20120910, end: 20120927
  6. SUNITINIB MALATE [Suspect]
     Dosage: 37.5 MG, CYCLIC
     Dates: start: 20120910, end: 20120927
  7. DOXORUBICIN HCL [Suspect]
     Indication: HEPATOCELLULAR CARCINOMA
     Dosage: UNK
  8. DOXORUBICIN HCL [Suspect]
     Dosage: 75 MG, UNK
     Dates: start: 20120807

REACTIONS (2)
  - Skin exfoliation [Recovered/Resolved]
  - Gait disturbance [Recovered/Resolved]
